FAERS Safety Report 7577064-X (Version None)
Quarter: 2011Q2

REPORT INFORMATION
  Report Type: 
  Country: None (occurrence: None)
  Receive Date: 20110624
  Receipt Date: 20110624
  Transmission Date: 20111010
  Serious: Yes (Disabling)
  Sender: FDA-Public Use
  Company Number: None

PATIENT
  Age: 10 Year
  Sex: Female
  Weight: 32.659 kg

DRUGS (1)
  1. LAMICTAL [Suspect]
     Indication: CONVULSION
     Dosage: 25MG 5 TABLETS BID PO
     Route: 048
     Dates: start: 20110531, end: 20110620

REACTIONS (8)
  - DRUG DISPENSING ERROR [None]
  - ABNORMAL BEHAVIOUR [None]
  - GAIT DISTURBANCE [None]
  - SPEECH DISORDER [None]
  - FATIGUE [None]
  - CONVULSION [None]
  - DROOLING [None]
  - MEDICATION ERROR [None]
